FAERS Safety Report 7401823-7 (Version None)
Quarter: 2011Q1

REPORT INFORMATION
  Report Type: 
  Country: None (occurrence: None)
  Receive Date: 20110301
  Receipt Date: 20100622
  Transmission Date: 20110831
  Serious: Yes (Other)
  Sender: FDA-Public Use
  Company Number: US-JNJFOC-20100607554

PATIENT
  Sex: Male

DRUGS (1)
  1. CHILDREN'S MOTRIN [Suspect]
     Indication: ILL-DEFINED DISORDER

REACTIONS (5)
  - PRODUCT QUALITY ISSUE [None]
  - DYSPNOEA [None]
  - LARYNGEAL OEDEMA [None]
  - SWELLING FACE [None]
  - WHEEZING [None]
